FAERS Safety Report 4710823-7 (Version None)
Quarter: 2005Q2

REPORT INFORMATION
  Report Type: 
  Country: None (occurrence: None)
  Receive Date: 20050629
  Receipt Date: 20050316
  Transmission Date: 20051028
  Serious: No
  Sender: FDA-Public Use
  Company Number: 03P-163-0244791-00

PATIENT
  Age: 63 Year
  Sex: Female
  Weight: 68.0396 kg

DRUGS (4)
  1. HUMIRA [Suspect]
     Indication: RHEUMATOID ARTHRITIS
     Dosage: 40 MG, 1 IN 2 WK, SUBCUTANEOUS
     Route: 058
     Dates: start: 20031212, end: 20041101
  2. METHOTREXATE [Concomitant]
  3. PREDNISONE TAB [Concomitant]
  4. VITAMINS [Concomitant]

REACTIONS (10)
  - BLOOD PRESSURE INCREASED [None]
  - BURNING SENSATION [None]
  - DYSPNOEA [None]
  - FLUSHING [None]
  - HEADACHE [None]
  - PARAESTHESIA [None]
  - PRURITUS [None]
  - PRURITUS GENERALISED [None]
  - RASH [None]
  - SWOLLEN TONGUE [None]
